FAERS Safety Report 9717039 (Version 3)
Quarter: 2015Q3

REPORT INFORMATION
  Report Type: Spontaneous
  Country: US (occurrence: US)
  Receive Date: 20131127
  Receipt Date: 20150803
  Transmission Date: 20151125
  Serious: No
  Sender: FDA-Public Use
  Company Number: US-GILEAD-2009-0020168

PATIENT
  Age: 57 Year
  Sex: Female
  Weight: 49.89 kg

DRUGS (1)
  1. LETAIRIS [Suspect]
     Active Substance: AMBRISENTAN
     Route: 048
     Dates: start: 200708, end: 200902

REACTIONS (2)
  - Drug ineffective [Unknown]
  - Peripheral swelling [Recovering/Resolving]
